FAERS Safety Report 9464191 (Version 1)
Quarter: 2013Q3

REPORT INFORMATION
  Report Type: Spontaneous
  Country: EC (occurrence: EC)
  Receive Date: 20130819
  Receipt Date: 20130819
  Transmission Date: 20140515
  Serious: Yes (Other)
  Sender: FDA-Public Use
  Company Number: EC-PFIZER INC-2013234460

PATIENT
  Age: 13 Year
  Sex: Male

DRUGS (2)
  1. GENOTROPIN [Suspect]
     Indication: GROWTH RETARDATION
     Dosage: UNK
     Route: 058
     Dates: start: 2010, end: 2012
  2. GENOTROPIN [Suspect]
     Dosage: UNK
     Dates: start: 2013

REACTIONS (1)
  - Pituitary tumour benign [Unknown]
